FAERS Safety Report 6195839-9 (Version None)
Quarter: 2009Q2

REPORT INFORMATION
  Report Type: 
  Country: None (occurrence: None)
  Receive Date: 20090515
  Receipt Date: 20090429
  Transmission Date: 20091009
  Serious: Yes (Hospitalization)
  Sender: FDA-Public Use
  Company Number: 2009PL000189

PATIENT
  Age: 53 Year
  Sex: Female
  Weight: 76.2043 kg

DRUGS (9)
  1. LOTRONEX [Suspect]
     Indication: IRRITABLE BOWEL SYNDROME
     Dosage: 1 MG;BID;PO
     Route: 048
     Dates: start: 20090112, end: 20090210
  2. GLUCOPHAGE [Concomitant]
  3. LOTENSIN [Concomitant]
  4. TOPROL-XL [Concomitant]
  5. COLESTID [Concomitant]
  6. VYTORIN [Concomitant]
  7. LOMOTIL [Concomitant]
  8. CELEXA [Concomitant]
  9. JANUVIA [Concomitant]

REACTIONS (14)
  - ABDOMINAL DISCOMFORT [None]
  - ABDOMINAL PAIN [None]
  - ABDOMINAL PAIN UPPER [None]
  - BLOOD GLUCOSE INCREASED [None]
  - BLOOD LACTIC ACID INCREASED [None]
  - BLOOD UREA DECREASED [None]
  - COMPUTERISED TOMOGRAM ABNORMAL [None]
  - CONSTIPATION [None]
  - DIVERTICULUM INTESTINAL [None]
  - LIPASE INCREASED [None]
  - NAUSEA [None]
  - UTERINE ENLARGEMENT [None]
  - VOMITING [None]
  - WHITE BLOOD CELL COUNT INCREASED [None]
